FAERS Safety Report 24708280 (Version 1)
Quarter: 2024Q4

REPORT INFORMATION
  Report Type: Spontaneous
  Country: US (occurrence: US)
  Receive Date: 20241207
  Receipt Date: 20241207
  Transmission Date: 20250115
  Serious: No
  Sender: AMGEN
  Company Number: US-AMGEN-USASP2024238275

PATIENT
  Age: 73 Year
  Sex: Male

DRUGS (1)
  1. AIMOVIG [Suspect]
     Active Substance: ERENUMAB\ERENUMAB-AOOE
     Indication: Product used for unknown indication
     Dosage: 70 MILLIGRAM, QMO
     Route: 065
     Dates: start: 20241123

REACTIONS (3)
  - Device difficult to use [Unknown]
  - Wrong technique in device usage process [Unknown]
  - Injection site indentation [Unknown]

NARRATIVE: CASE EVENT DATE: 20241123
